FAERS Safety Report 4682161-2 (Version None)
Quarter: 2005Q2

REPORT INFORMATION
  Report Type: 
  Country: None (occurrence: None)
  Receive Date: 20050602
  Receipt Date: 20040610
  Transmission Date: 20051028
  Serious: Yes (Other)
  Sender: FDA-Public Use
  Company Number: 370897

PATIENT
  Age: 63 Year
  Sex: Female

DRUGS (1)
  1. LARIAM [Suspect]
     Indication: PROPHYLAXIS
     Dosage: 1 PER WEEK ORAL
     Route: 048
     Dates: start: 20040601, end: 20040607

REACTIONS (4)
  - HYPERSENSITIVITY [None]
  - PRURITUS [None]
  - RASH [None]
  - URTICARIA [None]
